FAERS Safety Report 18265479 (Version 6)
Quarter: 2022Q1

REPORT INFORMATION
  Report Type: Spontaneous
  Country: DE (occurrence: DE)
  Receive Date: 20200915
  Receipt Date: 20220113
  Transmission Date: 20220423
  Serious: Yes (Hospitalization, Other)
  Sender: FDA-Public Use
  Company Number: DE-MYLANLABS-2019M1066170

PATIENT
  Sex: Female

DRUGS (150)
  1. SPIRIVA [Suspect]
     Active Substance: TIOTROPIUM BROMIDE MONOHYDRATE
     Indication: Product used for unknown indication
     Dates: start: 20161010
  2. SPIRIVA [Suspect]
     Active Substance: TIOTROPIUM BROMIDE MONOHYDRATE
     Dates: start: 20161016
  3. SPIRIVA [Suspect]
     Active Substance: TIOTROPIUM BROMIDE MONOHYDRATE
     Dates: start: 20161117
  4. SPIRIVA [Suspect]
     Active Substance: TIOTROPIUM BROMIDE MONOHYDRATE
     Dates: start: 20170619
  5. SPIRIVA [Suspect]
     Active Substance: TIOTROPIUM BROMIDE MONOHYDRATE
     Dates: start: 20171214
  6. SPIRIVA [Suspect]
     Active Substance: TIOTROPIUM BROMIDE MONOHYDRATE
     Dates: start: 20180608
  7. FENOTEROL HYDROBROMIDE\IPRATROPIUM BROMIDE [Suspect]
     Active Substance: FENOTEROL HYDROBROMIDE\IPRATROPIUM BROMIDE
     Indication: Product used for unknown indication
     Dates: start: 20160317, end: 20160920
  8. FENOTEROL HYDROBROMIDE\IPRATROPIUM BROMIDE [Suspect]
     Active Substance: FENOTEROL HYDROBROMIDE\IPRATROPIUM BROMIDE
  9. FENOTEROL HYDROBROMIDE\IPRATROPIUM BROMIDE [Suspect]
     Active Substance: FENOTEROL HYDROBROMIDE\IPRATROPIUM BROMIDE
  10. FENOTEROL HYDROBROMIDE\IPRATROPIUM BROMIDE [Suspect]
     Active Substance: FENOTEROL HYDROBROMIDE\IPRATROPIUM BROMIDE
  11. VALSARTAN [Suspect]
     Active Substance: VALSARTAN
     Indication: Hypertension
     Dosage: UNK
     Dates: start: 20170816, end: 201709
  12. RAMIPRIL [Suspect]
     Active Substance: RAMIPRIL
     Indication: Product used for unknown indication
     Dosage: UNK
     Dates: start: 20160412
  13. DICLOFENAC SODIUM [Suspect]
     Active Substance: DICLOFENAC SODIUM
     Indication: Product used for unknown indication
     Dosage: UNK
     Dates: start: 20160303
  14. VALSARTAN [Suspect]
     Active Substance: VALSARTAN
     Indication: Hypertension
     Dosage: 160 MILLIGRAM, QD
     Dates: start: 201610, end: 201706
  15. VALSARTAN [Suspect]
     Active Substance: VALSARTAN
     Dosage: 240 MILLIGRAM, QD (1 IN MORNING AND 1/2 IN EVENING)
     Dates: start: 201709, end: 201811
  16. VALSARTAN [Suspect]
     Active Substance: VALSARTAN
     Dosage: 240 MILLIGRAM, PM (NOT REPORTED THE EVENING TOTAL 240 MG DAILY)
     Dates: start: 201906, end: 201907
  17. VALSARTAN [Suspect]
     Active Substance: VALSARTAN
     Dosage: 80 MILLIGRAM, BID ((IN THE MORNING AND EVENING)
  18. VALSARTAN [Suspect]
     Active Substance: VALSARTAN
     Dosage: 80 MILLIGRAM, BID ((IN THE MORNING AND EVENING)
  19. MINOCYCLINE HYDROCHLORIDE [Suspect]
     Active Substance: MINOCYCLINE HYDROCHLORIDE
     Indication: Product used for unknown indication
     Dosage: UNK
     Dates: start: 20161216
  20. SIMVASTATIN [Suspect]
     Active Substance: SIMVASTATIN
     Indication: Product used for unknown indication
     Dosage: UNK
     Dates: start: 20160512
  21. SIMVASTATIN [Suspect]
     Active Substance: SIMVASTATIN
     Dosage: UNK
     Dates: start: 20161010, end: 20170109
  22. SIMVASTATIN [Suspect]
     Active Substance: SIMVASTATIN
     Route: 065
     Dates: start: 20170410, end: 20170619
  23. SIMVASTATIN [Suspect]
     Active Substance: SIMVASTATIN
  24. SIMVASTATIN [Suspect]
     Active Substance: SIMVASTATIN
  25. SIMVASTATIN [Suspect]
     Active Substance: SIMVASTATIN
  26. SIMVASTATIN [Suspect]
     Active Substance: SIMVASTATIN
  27. SIMVASTATIN [Suspect]
     Active Substance: SIMVASTATIN
  28. SIMVASTATIN [Suspect]
     Active Substance: SIMVASTATIN
  29. SIMVASTATIN [Suspect]
     Active Substance: SIMVASTATIN
  30. CEFUROXIME AXETIL [Suspect]
     Active Substance: CEFUROXIME AXETIL
     Indication: Product used for unknown indication
     Dosage: UNK
     Dates: start: 20160927, end: 20171005
  31. LEVOTHYROXINE SODIUM [Suspect]
     Active Substance: LEVOTHYROXINE SODIUM
     Indication: Product used for unknown indication
     Dosage: UNK
     Route: 065
     Dates: start: 20160201
  32. VALSARTAN [Suspect]
     Active Substance: VALSARTAN
     Indication: Hypertension
     Dosage: UNK
     Dates: start: 20190304, end: 20190423
  33. VALSARTAN [Suspect]
     Active Substance: VALSARTAN
     Dosage: UNK
     Dates: start: 20190521, end: 20191021
  34. VALSARTAN [Suspect]
     Active Substance: VALSARTAN
     Dates: start: 20190716, end: 20191017
  35. CLARITHROMYCIN [Suspect]
     Active Substance: CLARITHROMYCIN
     Indication: Product used for unknown indication
     Dosage: UNK
     Dates: start: 20160310
  36. AZITHROMYCIN [Suspect]
     Active Substance: AZITHROMYCIN
     Indication: Product used for unknown indication
     Dosage: UNK
     Dates: start: 20160920
  37. LEVOTHYROXINE SODIUM [Suspect]
     Active Substance: LEVOTHYROXINE SODIUM
     Indication: Product used for unknown indication
     Dosage: UNK
     Route: 065
     Dates: start: 20170109, end: 20170410
  38. LEVOTHYROXINE SODIUM [Suspect]
     Active Substance: LEVOTHYROXINE SODIUM
     Dosage: UNK
     Route: 065
     Dates: start: 20170619, end: 20171115
  39. LEVOTHYROXINE SODIUM [Suspect]
     Active Substance: LEVOTHYROXINE SODIUM
     Dosage: UNK
     Route: 065
     Dates: start: 20180305, end: 20180608
  40. PANTOPRAZOLE SODIUM [Suspect]
     Active Substance: PANTOPRAZOLE SODIUM
     Indication: Product used for unknown indication
     Dosage: UNK
     Dates: start: 20161216
  41. PANTOPRAZOLE SODIUM [Suspect]
     Active Substance: PANTOPRAZOLE SODIUM
  42. PANTOPRAZOLE SODIUM [Suspect]
     Active Substance: PANTOPRAZOLE SODIUM
  43. PANTOPRAZOLE SODIUM [Suspect]
     Active Substance: PANTOPRAZOLE SODIUM
  44. PANTOPRAZOLE SODIUM [Suspect]
     Active Substance: PANTOPRAZOLE SODIUM
  45. PANTOPRAZOLE SODIUM [Suspect]
     Active Substance: PANTOPRAZOLE SODIUM
  46. PANTOPRAZOLE SODIUM [Suspect]
     Active Substance: PANTOPRAZOLE SODIUM
  47. PANTOPRAZOLE SODIUM [Suspect]
     Active Substance: PANTOPRAZOLE SODIUM
  48. PANTOPRAZOLE SODIUM [Suspect]
     Active Substance: PANTOPRAZOLE SODIUM
  49. PANTOPRAZOLE SODIUM [Suspect]
     Active Substance: PANTOPRAZOLE SODIUM
  50. MINOCYCLINE HYDROCHLORIDE [Suspect]
     Active Substance: MINOCYCLINE HYDROCHLORIDE
     Indication: Product used for unknown indication
     Dosage: UNK
     Dates: start: 20170814
  51. MINOCYCLINE HYDROCHLORIDE [Suspect]
     Active Substance: MINOCYCLINE HYDROCHLORIDE
  52. MINOCYCLINE HYDROCHLORIDE [Suspect]
     Active Substance: MINOCYCLINE HYDROCHLORIDE
  53. MINOCYCLINE HYDROCHLORIDE [Suspect]
     Active Substance: MINOCYCLINE HYDROCHLORIDE
  54. MINOCYCLINE HYDROCHLORIDE [Suspect]
     Active Substance: MINOCYCLINE HYDROCHLORIDE
  55. MINOCYCLINE HYDROCHLORIDE [Suspect]
     Active Substance: MINOCYCLINE HYDROCHLORIDE
  56. MINOCYCLINE HYDROCHLORIDE [Suspect]
     Active Substance: MINOCYCLINE HYDROCHLORIDE
  57. MINOCYCLINE HYDROCHLORIDE [Suspect]
     Active Substance: MINOCYCLINE HYDROCHLORIDE
  58. MINOCYCLINE HYDROCHLORIDE [Suspect]
     Active Substance: MINOCYCLINE HYDROCHLORIDE
  59. MINOCYCLINE HYDROCHLORIDE [Suspect]
     Active Substance: MINOCYCLINE HYDROCHLORIDE
  60. CEFUROXIME AXETIL [Suspect]
     Active Substance: CEFUROXIME AXETIL
     Indication: Product used for unknown indication
     Dosage: UNK
     Dates: start: 20170731
  61. CEFUROXIME AXETIL [Suspect]
     Active Substance: CEFUROXIME AXETIL
  62. CEFUROXIME AXETIL [Suspect]
     Active Substance: CEFUROXIME AXETIL
  63. CEFUROXIME AXETIL [Suspect]
     Active Substance: CEFUROXIME AXETIL
  64. CEFUROXIME AXETIL [Suspect]
     Active Substance: CEFUROXIME AXETIL
  65. CEFUROXIME AXETIL [Suspect]
     Active Substance: CEFUROXIME AXETIL
  66. CEFUROXIME AXETIL [Suspect]
     Active Substance: CEFUROXIME AXETIL
  67. CEFUROXIME AXETIL [Suspect]
     Active Substance: CEFUROXIME AXETIL
  68. CEFUROXIME AXETIL [Suspect]
     Active Substance: CEFUROXIME AXETIL
  69. CEFUROXIME AXETIL [Suspect]
     Active Substance: CEFUROXIME AXETIL
  70. LEVOTHYROXINE SODIUM [Suspect]
     Active Substance: LEVOTHYROXINE SODIUM
     Indication: Product used for unknown indication
     Dosage: UNK
     Dates: start: 20160412
  71. LEVOTHYROXINE SODIUM [Suspect]
     Active Substance: LEVOTHYROXINE SODIUM
     Route: 065
     Dates: start: 20161010
  72. METOPROLOL TARTRATE [Suspect]
     Active Substance: METOPROLOL TARTRATE
     Indication: Product used for unknown indication
     Dosage: UNK
     Route: 065
     Dates: start: 20160419
  73. METOPROLOL TARTRATE [Suspect]
     Active Substance: METOPROLOL TARTRATE
  74. METOPROLOL TARTRATE [Suspect]
     Active Substance: METOPROLOL TARTRATE
  75. METOPROLOL TARTRATE [Suspect]
     Active Substance: METOPROLOL TARTRATE
  76. METOPROLOL TARTRATE [Suspect]
     Active Substance: METOPROLOL TARTRATE
  77. METOPROLOL TARTRATE [Suspect]
     Active Substance: METOPROLOL TARTRATE
  78. METOPROLOL TARTRATE [Suspect]
     Active Substance: METOPROLOL TARTRATE
  79. METOPROLOL TARTRATE [Suspect]
     Active Substance: METOPROLOL TARTRATE
  80. METOPROLOL TARTRATE [Suspect]
     Active Substance: METOPROLOL TARTRATE
  81. METOPROLOL TARTRATE [Suspect]
     Active Substance: METOPROLOL TARTRATE
  82. FOSFOMYCIN TROMETHAMINE [Suspect]
     Active Substance: FOSFOMYCIN TROMETHAMINE
     Indication: Product used for unknown indication
     Dosage: UNK
     Dates: start: 20170819
  83. FOSFOMYCIN TROMETHAMINE [Suspect]
     Active Substance: FOSFOMYCIN TROMETHAMINE
  84. FOSFOMYCIN TROMETHAMINE [Suspect]
     Active Substance: FOSFOMYCIN TROMETHAMINE
  85. FOSFOMYCIN TROMETHAMINE [Suspect]
     Active Substance: FOSFOMYCIN TROMETHAMINE
  86. FOSFOMYCIN TROMETHAMINE [Suspect]
     Active Substance: FOSFOMYCIN TROMETHAMINE
  87. FOSFOMYCIN TROMETHAMINE [Suspect]
     Active Substance: FOSFOMYCIN TROMETHAMINE
  88. FOSFOMYCIN TROMETHAMINE [Suspect]
     Active Substance: FOSFOMYCIN TROMETHAMINE
  89. FOSFOMYCIN TROMETHAMINE [Suspect]
     Active Substance: FOSFOMYCIN TROMETHAMINE
  90. FOSFOMYCIN TROMETHAMINE [Suspect]
     Active Substance: FOSFOMYCIN TROMETHAMINE
  91. FOSFOMYCIN TROMETHAMINE [Suspect]
     Active Substance: FOSFOMYCIN TROMETHAMINE
  92. EPINEPHRINE BITARTRATE [Suspect]
     Active Substance: EPINEPHRINE BITARTRATE
     Indication: Product used for unknown indication
     Dosage: UNK
     Dates: start: 20171012
  93. EPINEPHRINE BITARTRATE [Suspect]
     Active Substance: EPINEPHRINE BITARTRATE
  94. EPINEPHRINE BITARTRATE [Suspect]
     Active Substance: EPINEPHRINE BITARTRATE
  95. EPINEPHRINE BITARTRATE [Suspect]
     Active Substance: EPINEPHRINE BITARTRATE
  96. EPINEPHRINE BITARTRATE [Suspect]
     Active Substance: EPINEPHRINE BITARTRATE
  97. EPINEPHRINE BITARTRATE [Suspect]
     Active Substance: EPINEPHRINE BITARTRATE
  98. EPINEPHRINE BITARTRATE [Suspect]
     Active Substance: EPINEPHRINE BITARTRATE
  99. EPINEPHRINE BITARTRATE [Suspect]
     Active Substance: EPINEPHRINE BITARTRATE
  100. EPINEPHRINE BITARTRATE [Suspect]
     Active Substance: EPINEPHRINE BITARTRATE
  101. EPINEPHRINE BITARTRATE [Suspect]
     Active Substance: EPINEPHRINE BITARTRATE
  102. BETAMETHASONE [Suspect]
     Active Substance: BETAMETHASONE
     Indication: Product used for unknown indication
     Dosage: UNK
     Dates: start: 20171012
  103. BETAMETHASONE [Suspect]
     Active Substance: BETAMETHASONE
  104. BETAMETHASONE [Suspect]
     Active Substance: BETAMETHASONE
  105. BETAMETHASONE [Suspect]
     Active Substance: BETAMETHASONE
  106. BETAMETHASONE [Suspect]
     Active Substance: BETAMETHASONE
  107. BETAMETHASONE [Suspect]
     Active Substance: BETAMETHASONE
  108. BETAMETHASONE [Suspect]
     Active Substance: BETAMETHASONE
  109. BETAMETHASONE [Suspect]
     Active Substance: BETAMETHASONE
  110. BETAMETHASONE [Suspect]
     Active Substance: BETAMETHASONE
  111. BETAMETHASONE [Suspect]
     Active Substance: BETAMETHASONE
  112. LEVOTHYROXINE SODIUM [Suspect]
     Active Substance: LEVOTHYROXINE SODIUM
     Indication: Product used for unknown indication
     Dosage: UNK
     Dates: start: 20161010
  113. AMLODIPINE MALEATE [Suspect]
     Active Substance: AMLODIPINE MALEATE
     Indication: Product used for unknown indication
     Dosage: UNK
     Dates: start: 20171115
  114. AMLODIPINE MALEATE [Suspect]
     Active Substance: AMLODIPINE MALEATE
     Dosage: UNK
     Dates: start: 20170410, end: 20170619
  115. AMLODIPINE MALEATE [Suspect]
     Active Substance: AMLODIPINE MALEATE
     Dosage: UNK
     Dates: start: 20161024, end: 20170109
  116. AMLODIPINE MALEATE [Suspect]
     Active Substance: AMLODIPINE MALEATE
  117. AMLODIPINE MALEATE [Suspect]
     Active Substance: AMLODIPINE MALEATE
  118. AMLODIPINE MALEATE [Suspect]
     Active Substance: AMLODIPINE MALEATE
  119. AMLODIPINE MALEATE [Suspect]
     Active Substance: AMLODIPINE MALEATE
  120. AMLODIPINE MALEATE [Suspect]
     Active Substance: AMLODIPINE MALEATE
  121. AMLODIPINE MALEATE [Suspect]
     Active Substance: AMLODIPINE MALEATE
  122. AMLODIPINE MALEATE [Suspect]
     Active Substance: AMLODIPINE MALEATE
  123. VALSARTAN [Suspect]
     Active Substance: VALSARTAN
     Indication: Hypertension
     Dosage: UNK
     Dates: start: 20190716, end: 20191017
  124. VALSARTAN [Suspect]
     Active Substance: VALSARTAN
     Indication: Hypertension
     Dosage: UNK
     Dates: start: 20181213, end: 201903
  125. VALSARTAN [Suspect]
     Active Substance: VALSARTAN
     Dosage: UNK
     Dates: start: 20170816, end: 201909
  126. VALSARTAN [Suspect]
     Active Substance: VALSARTAN
  127. VALSARTAN [Suspect]
     Active Substance: VALSARTAN
     Dosage: QD (1 IN MORNING AND 1/2 IN EVENING)
  128. VALSARTAN [Suspect]
     Active Substance: VALSARTAN
     Dosage: 240 MILLIGRAM, PM (NOT REPORTED THE EVENING TOTAL 240 MG DAILY)
  129. VALSARTAN [Suspect]
     Active Substance: VALSARTAN
     Dosage: 80 MILLIGRAM, BID ((IN THE MORNING AND EVENING)
  130. VALSARTAN [Suspect]
     Active Substance: VALSARTAN
     Dates: start: 201610, end: 201706
  131. VALSARTAN [Suspect]
     Active Substance: VALSARTAN
     Dates: start: 201709, end: 201811
  132. VALSARTAN [Suspect]
     Active Substance: VALSARTAN
     Dates: start: 201906, end: 201907
  133. PREDNISOLONE [Suspect]
     Active Substance: PREDNISOLONE
     Indication: Product used for unknown indication
     Dosage: UNK
     Dates: start: 20160404
  134. PREDNISOLONE [Suspect]
     Active Substance: PREDNISOLONE
  135. PREDNISOLONE [Suspect]
     Active Substance: PREDNISOLONE
  136. PREDNISOLONE [Suspect]
     Active Substance: PREDNISOLONE
  137. TAVOR (LORAZEPAM) [Suspect]
     Active Substance: LORAZEPAM
     Indication: Product used for unknown indication
     Dosage: UNK
     Dates: start: 20180713
  138. TAVOR (LORAZEPAM) [Suspect]
     Active Substance: LORAZEPAM
  139. TAVOR (LORAZEPAM) [Suspect]
     Active Substance: LORAZEPAM
  140. TAVOR (LORAZEPAM) [Suspect]
     Active Substance: LORAZEPAM
  141. DICLOFENAC SODIUM [Suspect]
     Active Substance: DICLOFENAC SODIUM
     Indication: Product used for unknown indication
     Dosage: UNK
     Dates: start: 20171115, end: 20180608
  142. DICLOFENAC SODIUM [Suspect]
     Active Substance: DICLOFENAC SODIUM
  143. DICLOFENAC SODIUM [Suspect]
     Active Substance: DICLOFENAC SODIUM
  144. DICLOFENAC SODIUM [Suspect]
     Active Substance: DICLOFENAC SODIUM
  145. METOPROLOL TARTRATE [Suspect]
     Active Substance: METOPROLOL TARTRATE
     Indication: Product used for unknown indication
     Dosage: UNK
     Dates: start: 20171115, end: 20180305
  146. METOPROLOL TARTRATE [Suspect]
     Active Substance: METOPROLOL TARTRATE
     Dosage: UNK
     Dates: start: 20170109, end: 20170323
  147. METOPROLOL TARTRATE [Suspect]
     Active Substance: METOPROLOL TARTRATE
     Dosage: UNK
     Dates: start: 20161010, end: 20161117
  148. METOPROLOL TARTRATE [Suspect]
     Active Substance: METOPROLOL TARTRATE
     Dosage: UNK
     Dates: start: 20180608
  149. METOPROLOL TARTRATE [Suspect]
     Active Substance: METOPROLOL TARTRATE
     Dosage: UNK
     Dates: start: 20170814, end: 20171005
  150. METOPROLOL TARTRATE [Suspect]
     Active Substance: METOPROLOL TARTRATE
     Dosage: UNK
     Dates: start: 20170515, end: 20170619

REACTIONS (13)
  - Mental impairment [Not Recovered/Not Resolved]
  - Panic attack [Unknown]
  - Depression [Not Recovered/Not Resolved]
  - Impaired quality of life [Not Recovered/Not Resolved]
  - Dizziness [Unknown]
  - Nausea [Unknown]
  - Fear of disease [Unknown]
  - Fatigue [Unknown]
  - Hypertension [Unknown]
  - Sense of oppression [Unknown]
  - Anxiety [Unknown]
  - Dyspnoea [Unknown]
  - Hyperhidrosis [Unknown]
